FAERS Safety Report 4602382-4 (Version None)
Quarter: 2005Q1

REPORT INFORMATION
  Report Type: 
  Country: None (occurrence: None)
  Receive Date: 20050307
  Receipt Date: 20050106
  Transmission Date: 20050727
  Serious: Yes (Hospitalization, Other)
  Sender: FDA-Public Use
  Company Number: 2003171346US

PATIENT
  Age: 80 Year
  Sex: Male

DRUGS (5)
  1. CELEBREX [Suspect]
     Indication: OSTEOARTHRITIS
     Dosage: 400 MG (1 IN 1 D)
  2. CELEBREX [Suspect]
     Indication: RHEUMATOID ARTHRITIS
     Dosage: 400 MG (1 IN 1 D)
  3. CLOPIDOGREL BISULFATE [Concomitant]
  4. METOPROLOL SUCCINATE [Concomitant]
  5. IRBESARTAN [Concomitant]

REACTIONS (6)
  - ACTIVITIES OF DAILY LIVING IMPAIRED [None]
  - CEREBROVASCULAR ACCIDENT [None]
  - CORONARY ARTERY SURGERY [None]
  - MUSCULOSKELETAL STIFFNESS [None]
  - PAIN [None]
  - WALKING AID USER [None]
